FAERS Safety Report 8479662-8 (Version None)
Quarter: 2012Q2

REPORT INFORMATION
  Report Type: 
  Country: None (occurrence: None)
  Receive Date: 20120629
  Receipt Date: 20120618
  Transmission Date: 20120825
  Serious: Yes (Hospitalization)
  Sender: FDA-Public Use
  Company Number: JP-VERTEX PHARMACEUTICALS INC.-AE-2012-009159

PATIENT
  Age: 65 Year
  Sex: Male

DRUGS (17)
  1. TELAVIC (TELAPREVIR) [Suspect]
     Route: 048
     Dates: start: 20120307, end: 20120411
  2. TELAVIC (TELAPREVIR) [Suspect]
     Route: 048
     Dates: start: 20120412, end: 20120418
  3. GASMOTIN [Concomitant]
     Route: 048
     Dates: start: 20120305, end: 20120307
  4. EPINASTINE HYDROCHLORIDE [Concomitant]
     Route: 048
  5. TELAVIC (TELAPREVIR) [Suspect]
     Indication: HEPATITIS C
     Route: 048
     Dates: start: 20120301, end: 20120306
  6. OMEPRAZOLE [Concomitant]
     Route: 048
     Dates: start: 20120304
  7. RIBAVIRIN [Concomitant]
     Indication: HEPATITIS C
     Route: 048
     Dates: start: 20120301, end: 20120305
  8. MUCOSTA [Concomitant]
     Route: 048
  9. SM [Concomitant]
     Route: 048
  10. PRIMPERAN TAB [Concomitant]
     Route: 048
     Dates: start: 20120306
  11. RABEPRAZOLE SODIUM [Concomitant]
     Route: 048
     Dates: start: 20120418
  12. RIBAVIRIN [Concomitant]
     Route: 048
     Dates: start: 20120306
  13. PEGINTERFERON ALFA-2B [Concomitant]
     Indication: HEPATITIS C
     Route: 058
     Dates: start: 20120301, end: 20120328
  14. PEGINTERFERON ALFA-2B [Concomitant]
     Route: 058
     Dates: start: 20120403
  15. CEFAZOLIN SODIUM [Concomitant]
     Route: 048
  16. FLOMOX [Concomitant]
     Route: 048
     Dates: start: 20120307, end: 20120309
  17. PREDNISOLONE [Concomitant]
     Route: 048
     Dates: start: 20120418, end: 20120516

REACTIONS (1)
  - TOXIC SKIN ERUPTION [None]
